FAERS Safety Report 9331428 (Version 3)
Quarter: 2014Q3

REPORT INFORMATION
  Report Type: Spontaneous
  Country: US (occurrence: US)
  Receive Date: 20130605
  Receipt Date: 20140915
  Transmission Date: 20150326
  Serious: Yes (Death, Hospitalization, Other)
  Sender: FDA-Public Use
  Company Number: US-BAYER-2013-068357

PATIENT
  Age: 40 Year
  Sex: Female

DRUGS (3)
  1. YASMIN [Suspect]
     Active Substance: DROSPIRENONE\ETHINYL ESTRADIOL
     Indication: ENDOMETRIOSIS
     Dosage: UNK
     Dates: start: 200612, end: 200703
  2. ADVIL [Concomitant]
     Active Substance: IBUPROFEN
     Dosage: UNK
     Dates: start: 2000
  3. YAZ [Suspect]
     Active Substance: DROSPIRENONE\ETHINYL ESTRADIOL
     Indication: ENDOMETRIOSIS
     Dosage: UNK
     Dates: start: 2007, end: 2007

REACTIONS (17)
  - Cerebral haemorrhage [None]
  - Peripheral swelling [Fatal]
  - Skin discolouration [Fatal]
  - Pain [Fatal]
  - Pulmonary embolism [None]
  - Myocardial infarction [None]
  - Injury [None]
  - Anhedonia [None]
  - Pelvic venous thrombosis [Fatal]
  - Hypertension [None]
  - Gallbladder disorder [None]
  - Thrombophlebitis [None]
  - Anxiety [None]
  - Hepatic adenoma [None]
  - Cerebral thrombosis [None]
  - Embolism arterial [None]
  - Discomfort [Fatal]

NARRATIVE: CASE EVENT DATE: 200703
